FAERS Safety Report 6060131-X (Version None)
Quarter: 2009Q1

REPORT INFORMATION
  Report Type: 
  Country: None (occurrence: None)
  Receive Date: 20090128
  Receipt Date: 20090119
  Transmission Date: 20090719
  Serious: Yes (Hospitalization)
  Sender: FDA-Public Use
  Company Number: DSA_33111_2009

PATIENT
  Sex: Male

DRUGS (4)
  1. LORAZEPAM [Suspect]
     Dosage: (50 MG 1X, NOT THE PRESCRIBED AMOUNT ORAL)
     Route: 048
     Dates: start: 20090118, end: 20090118
  2. MIRTAZAPINE [Suspect]
     Dosage: (NOT THE PRESCRIBED AMOUNT ORAL)
     Route: 048
     Dates: start: 20090118, end: 20090118
  3. PIPAMPERONE (PIPAMPERONE) [Suspect]
     Dosage: (NOT THE PRESCRIBED AMOUNT ORAL)
     Route: 048
     Dates: start: 20090118, end: 20090118
  4. SEROQUEL [Suspect]
     Dosage: (NOT THE PRESCRIBED AMOUNT ORAL)
     Route: 048
     Dates: start: 20090118, end: 20090118

REACTIONS (7)
  - ELECTROCARDIOGRAM ABNORMAL [None]
  - HYPERVENTILATION [None]
  - HYPOTENSION [None]
  - MULTIPLE DRUG OVERDOSE INTENTIONAL [None]
  - POISONING [None]
  - SUICIDE ATTEMPT [None]
  - TACHYCARDIA [None]
